FAERS Safety Report 10619967 (Version 2)
Quarter: 2015Q1

REPORT INFORMATION
  Report Type: Spontaneous
  Country: US (occurrence: None)
  Receive Date: 20141128
  Receipt Date: 20150127
  Transmission Date: 20150720
  Serious: Yes (Disabling, Other)
  Sender: FDA-Public Use
  Company Number: 2014-20815

PATIENT
  Age: 92 Year
  Sex: Female
  Weight: 59.9 kg

DRUGS (8)
  1. FOLIC ACID (FOLIC ACID) [Concomitant]
     Active Substance: FOLIC ACID
  2. ATENOLOL (ATENOLOL) [Concomitant]
     Active Substance: ATENOLOL
  3. AMLODIPINE [Concomitant]
     Active Substance: AMLODIPINE BESYLATE
  4. GABAPENTIN (GABAPENTIN) [Concomitant]
     Active Substance: GABAPENTIN
  5. EYLEA [Suspect]
     Active Substance: AFLIBERCEPT
     Indication: MACULAR DEGENERATION
     Route: 031
     Dates: start: 20141014, end: 20141014
  6. QUINAPRIL (QUINAPRIL) [Concomitant]
  7. METFORMIN [Concomitant]
     Active Substance: METFORMIN HYDROCHLORIDE
  8. ASPIRIN (ACETYSALICYLIC ACID) [Concomitant]

REACTIONS (3)
  - Vision blurred [None]
  - Blindness transient [None]
  - Visual acuity reduced [None]

NARRATIVE: CASE EVENT DATE: 201410
